FAERS Safety Report 6839180-7 (Version None)
Quarter: 2010Q2

REPORT INFORMATION
  Report Type: 
  Country: None (occurrence: None)
  Receive Date: 20100629
  Receipt Date: 20100428
  Transmission Date: 20101027
  Serious: No
  Sender: FDA-Public Use
  Company Number: US-WYE-H14926510

PATIENT
  Age: 77 Year
  Sex: Male
  Weight: 59.02 kg

DRUGS (6)
  1. TORISEL [Suspect]
     Indication: RENAL CELL CARCINOMA
     Dosage: 0.5 MG 1X PER 1 WK ; 0.5 MG 1X PER 1 WK
     Dates: start: 20090101
  2. TORISEL [Suspect]
     Indication: RENAL CELL CARCINOMA
     Dosage: 0.5 MG 1X PER 1 WK ; 0.5 MG 1X PER 1 WK
     Dates: start: 20100101
  3. AVASTIN [Suspect]
     Indication: RENAL CELL CARCINOMA
  4. LEVOTHYROXINE SODIUM [Concomitant]
  5. SIMVASTATIN [Concomitant]
  6. ESOMEPRAZOLE MAGNESIUM [Concomitant]

REACTIONS (4)
  - DISEASE PROGRESSION [None]
  - FLUID RETENTION [None]
  - RASH PRURITIC [None]
  - RENAL FUNCTION TEST ABNORMAL [None]
